FAERS Safety Report 6642867-2 (Version None)
Quarter: 2010Q1

REPORT INFORMATION
  Report Type: 
  Country: None (occurrence: None)
  Receive Date: 20100319
  Receipt Date: 20090930
  Transmission Date: 20100710
  Serious: Yes (Death, Life-Threatening)
  Sender: FDA-Public Use
  Company Number: DE-JNJFOC-20090707155

PATIENT
  Age: 88 Year
  Sex: Male

DRUGS (3)
  1. TAVANIC [Suspect]
     Indication: PNEUMONIA
     Route: 042
     Dates: start: 20090630, end: 20090701
  2. NORADRENALIN [Concomitant]
     Indication: SEPTIC SHOCK
     Route: 042
     Dates: start: 20090618, end: 20090702
  3. PIPERACILLIN AND TAZOBACTAM [Concomitant]
     Indication: PNEUMONIA
     Route: 042

REACTIONS (5)
  - ACUTE HEPATIC FAILURE [None]
  - CARDIOVASCULAR INSUFFICIENCY [None]
  - HYPOGLYCAEMIA [None]
  - LACTIC ACIDOSIS [None]
  - MULTI-ORGAN FAILURE [None]
